FAERS Safety Report 4430193-1 (Version None)
Quarter: 2004Q3

REPORT INFORMATION
  Report Type: 
  Country: None (occurrence: None)
  Receive Date: 20040820
  Receipt Date: 20040810
  Transmission Date: 20050211
  Serious: Yes (Death)
  Sender: FDA-Public Use
  Company Number: US-JNJFOC-20040604645

PATIENT
  Age: 61 Year
  Sex: Male

DRUGS (7)
  1. NATRECOR [Suspect]
     Dosage: 1 UG/KG BOLUS WAS INFUSED INTRAVENOUSLY
     Route: 040
  2. LASIX [Concomitant]
     Dosage: TWO DOSES
     Route: 042
  3. DOPAMINE HCL [Concomitant]
     Indication: HYPOTENSION
  4. BETA BLOCKERS [Concomitant]
  5. ^TRADITIONAL^ HEART FAILURE MEDICATIONS [Concomitant]
  6. PLAVIX [Concomitant]
  7. ASPIRIN [Concomitant]

REACTIONS (3)
  - DISEASE PROGRESSION [None]
  - ISCHAEMIC CARDIOMYOPATHY [None]
  - VENTRICULAR TACHYCARDIA [None]
